FAERS Safety Report 4863942-9 (Version None)
Quarter: 2005Q4

REPORT INFORMATION
  Report Type: 
  Country: None (occurrence: None)
  Receive Date: 20051219
  Receipt Date: 20051207
  Transmission Date: 20060501
  Serious: Yes (Hospitalization)
  Sender: FDA-Public Use
  Company Number: 2005-135635-NL

PATIENT
  Age: 57 Year
  Sex: Female

DRUGS (5)
  1. MIRTAZAPINE [Suspect]
     Dosage: 30 MG QD ORAL
     Route: 048
     Dates: start: 20050811, end: 20050919
  2. LOVASTATINE [Concomitant]
  3. BISOPROLOL FUMARATE [Concomitant]
  4. VENLAFAXINE HCL [Concomitant]
  5. ALPRAZOLAM [Concomitant]

REACTIONS (1)
  - HEPATITIS CHOLESTATIC [None]
